FAERS Safety Report 13577028 (Version 2)
Quarter: 2017Q3

REPORT INFORMATION
  Report Type: Report from Study
  Country: US (occurrence: US)
  Receive Date: 20170524
  Receipt Date: 20170703
  Transmission Date: 20171127
  Serious: Yes (Hospitalization)
  Sender: FDA-Public Use
  Company Number: US-SHIRE-US201710468

PATIENT
  Sex: Female
  Weight: 96.15 kg

DRUGS (2)
  1. GATTEX [Suspect]
     Active Substance: TEDUGLUTIDE\WATER
     Indication: SHORT-BOWEL SYNDROME
     Dosage: 2.3 MG, 1X/DAY:QD
     Route: 058
     Dates: start: 20170424, end: 20170504
  2. GATTEX [Suspect]
     Active Substance: TEDUGLUTIDE\WATER
     Indication: MALABSORPTION
     Dosage: 0.24 ML, UNKNOWN
     Route: 058
     Dates: start: 20161123

REACTIONS (3)
  - Adhesion [Recovering/Resolving]
  - Renal disorder [Recovering/Resolving]
  - Gastrointestinal stoma complication [Recovering/Resolving]

NARRATIVE: CASE EVENT DATE: 2017
